FAERS Safety Report 9162630 (Version 1)
Quarter: 2013Q1

REPORT INFORMATION
  Report Type: Spontaneous
  Country: US (occurrence: US)
  Receive Date: 20130314
  Receipt Date: 20130314
  Transmission Date: 20140127
  Serious: No
  Sender: FDA-Public Use
  Company Number: US-ASTRAZENECA-2013SE10304

PATIENT
  Age: 90 Year
  Sex: Female

DRUGS (2)
  1. SYMBICORT [Suspect]
     Dosage: UNKNOWN
     Route: 055
  2. SYMBICORT [Suspect]
     Dosage: UNKNOWN
     Route: 055

REACTIONS (3)
  - Oral discharge [Not Recovered/Not Resolved]
  - Cough [Not Recovered/Not Resolved]
  - Oropharyngeal pain [Not Recovered/Not Resolved]
